FAERS Safety Report 8354237-X (Version None)
Quarter: 2012Q2

REPORT INFORMATION
  Report Type: 
  Country: None (occurrence: None)
  Receive Date: 20120511
  Receipt Date: 20120419
  Transmission Date: 20120825
  Serious: Yes (Hospitalization)
  Sender: FDA-Public Use
  Company Number: JP-JNJFOC-20120409216

PATIENT
  Sex: Male

DRUGS (3)
  1. USTEKINUMAB [Suspect]
     Route: 058
     Dates: start: 20111129
  2. USTEKINUMAB [Suspect]
     Indication: PSORIASIS
     Route: 058
     Dates: start: 20111101
  3. USTEKINUMAB [Suspect]
     Route: 058
     Dates: start: 20120221

REACTIONS (2)
  - FALL [None]
  - SPINAL COLUMN INJURY [None]
